FAERS Safety Report 14813380 (Version 1)
Quarter: 2018Q2

REPORT INFORMATION
  Report Type: Spontaneous
  Country: HK (occurrence: HK)
  Receive Date: 20180426
  Receipt Date: 20180426
  Transmission Date: 20180711
  Serious: Yes (Hospitalization, Other)
  Sender: FDA-Public Use
  Company Number: HK-ASTRAZENECA-2018SE23695

PATIENT
  Age: 79 Year
  Sex: Female

DRUGS (6)
  1. BETALOC [Concomitant]
     Active Substance: METOPROLOL TARTRATE
  2. OSIMERTINIB. [Suspect]
     Active Substance: OSIMERTINIB
     Route: 048
     Dates: start: 20180309
  3. OSIMERTINIB. [Suspect]
     Active Substance: OSIMERTINIB
     Route: 048
     Dates: start: 20160202, end: 20180213
  4. NORVASC [Concomitant]
     Active Substance: AMLODIPINE BESYLATE
  5. HYDRALAZINE HCL [Concomitant]
     Active Substance: HYDRALAZINE HYDROCHLORIDE
  6. PROTAPHANE HM [Concomitant]

REACTIONS (2)
  - Pneumonia [Unknown]
  - Malignant neoplasm progression [Unknown]
